FAERS Safety Report 18719141 (Version 1)
Quarter: 2021Q1

REPORT INFORMATION
  Report Type: Spontaneous
  Country: US (occurrence: US)
  Receive Date: 20210108
  Receipt Date: 20210108
  Transmission Date: 20210419
  Serious: Yes (Other)
  Sender: FDA-Public Use
  Company Number: US-AMERICAN REGENT INC-2021000074

PATIENT
  Age: 67 Year
  Sex: Female

DRUGS (3)
  1. TRANEXAMIC ACID INJECTION(0517?0960?01) [Suspect]
     Active Substance: TRANEXAMIC ACID
     Indication: GASTROINTESTINAL HAEMORRHAGE
     Dosage: UNK
     Route: 065
  2. AMINOCAPROIC ACID INJECTION, USP (9120?25) [Suspect]
     Active Substance: AMINOCAPROIC ACID
     Indication: GASTROINTESTINAL HAEMORRHAGE
     Dosage: UNK
     Route: 065
  3. TRANEXAMIC ACID INJECTION(0517?0960?01) [Suspect]
     Active Substance: TRANEXAMIC ACID
     Dosage: UNK

REACTIONS (3)
  - Product use in unapproved indication [Unknown]
  - Gastrointestinal haemorrhage [Recovering/Resolving]
  - Drug ineffective [Recovering/Resolving]
